FAERS Safety Report 21441935 (Version 2)
Quarter: 2022Q4

REPORT INFORMATION
  Report Type: Spontaneous
  Country: BY (occurrence: BY)
  Receive Date: 20221011
  Receipt Date: 20221019
  Transmission Date: 20230112
  Serious: Yes (Other)
  Sender: FDA-Public Use
  Company Number: BY-BAUSCH-BL-2020-009238

PATIENT

DRUGS (1)
  1. ELIDEL [Suspect]
     Active Substance: PIMECROLIMUS
     Indication: Dermatitis atopic
     Route: 065

REACTIONS (4)
  - Paraesthesia [Unknown]
  - Viral infection [Unknown]
  - Bacterial infection [Unknown]
  - Dry skin [Unknown]
